FAERS Safety Report 18682308 (Version 1)
Quarter: 2020Q4

REPORT INFORMATION
  Report Type: Spontaneous
  Country: FR (occurrence: FR)
  Receive Date: 20201230
  Receipt Date: 20201230
  Transmission Date: 20210114
  Serious: Yes (Hospitalization)
  Sender: FDA-Public Use
  Company Number: FR-BAXTER-2020BAX026185

PATIENT
  Age: 45 Year
  Sex: Female
  Weight: 78 kg

DRUGS (2)
  1. EPIRUBICINE MYLAN [Suspect]
     Active Substance: EPIRUBICIN
     Indication: PRODUCT ADMINISTRATION ERROR
     Route: 042
     Dates: start: 20201207, end: 20201207
  2. ENDOXAN 1000 MG, POUDRE POUR SOLUTIONINJECTABLE [Suspect]
     Active Substance: CYCLOPHOSPHAMIDE
     Indication: PRODUCT ADMINISTRATION ERROR
     Route: 042
     Dates: start: 20201207, end: 20201207

REACTIONS (4)
  - Oedema [Recovering/Resolving]
  - Extravasation [Recovering/Resolving]
  - Product administration error [Recovering/Resolving]
  - Erythema [Recovering/Resolving]

NARRATIVE: CASE EVENT DATE: 20201207
